FAERS Safety Report 22339072 (Version 2)
Quarter: 2024Q4

REPORT INFORMATION
  Report Type: Report from Study
  Country: US (occurrence: US)
  Receive Date: 20230518
  Receipt Date: 20241022
  Transmission Date: 20250114
  Serious: Yes (Other)
  Sender: JAZZ
  Company Number: US-JAZZ PHARMACEUTICALS-2023-US-003813

PATIENT
  Sex: Female

DRUGS (4)
  1. XYWAV [Suspect]
     Active Substance: CALCIUM OXYBATE\MAGNESIUM OXYBATE\POTASSIUM OXYBATE\SODIUM OXYBATE
     Indication: Narcolepsy
     Dosage: 4.5 GRAM, BID
     Route: 048
  2. XYWAV [Suspect]
     Active Substance: CALCIUM OXYBATE\MAGNESIUM OXYBATE\POTASSIUM OXYBATE\SODIUM OXYBATE
     Indication: Cataplexy
  3. XYWAV [Suspect]
     Active Substance: CALCIUM OXYBATE\MAGNESIUM OXYBATE\POTASSIUM OXYBATE\SODIUM OXYBATE
     Indication: Somnolence
  4. PROVIGIL [Suspect]
     Active Substance: MODAFINIL
     Indication: Product used for unknown indication
     Dosage: UNK

REACTIONS (26)
  - Renal vein compression [Unknown]
  - Superior mesenteric artery syndrome [Unknown]
  - Postural orthostatic tachycardia syndrome [Unknown]
  - Neck pain [Unknown]
  - Irritable bowel syndrome [Unknown]
  - Brain fog [Unknown]
  - Morphoea [Unknown]
  - Epstein-Barr virus infection [Unknown]
  - Attention deficit hyperactivity disorder [Unknown]
  - Hypersomnia [Unknown]
  - Orthostatic hypotension [Unknown]
  - Eye pain [Unknown]
  - Visual impairment [Unknown]
  - Dyspnoea [Unknown]
  - Chest pain [Unknown]
  - Gastrooesophageal reflux disease [Unknown]
  - Arthralgia [Unknown]
  - Hypoaesthesia [Unknown]
  - Musculoskeletal pain [Unknown]
  - Headache [Unknown]
  - Sleep apnoea syndrome [Unknown]
  - Muscle spasms [Unknown]
  - Dizziness [Unknown]
  - Tremor [Unknown]
  - Paraesthesia [Unknown]
  - Product administration interrupted [Unknown]
